FAERS Safety Report 23424052 (Version 2)
Quarter: 2025Q2

REPORT INFORMATION
  Report Type: Spontaneous
  Country: ES (occurrence: ES)
  Receive Date: 20240120
  Receipt Date: 20250609
  Transmission Date: 20250716
  Serious: Yes (Other)
  Sender: AUROBINDO
  Company Number: ES-OTSUKA-2024_000301

PATIENT
  Age: 69 Year
  Sex: Female

DRUGS (3)
  1. ARIPIPRAZOLE [Suspect]
     Active Substance: ARIPIPRAZOLE
     Indication: Illness
     Dosage: 10 MILLIGRAM, ONCE A DAY,(IN THE MORNING)
     Route: 065
  2. OXCARBAZEPINE [Suspect]
     Active Substance: OXCARBAZEPINE
     Indication: Mixed anxiety and depressive disorder
     Dosage: 800 MILLIGRAM, ONCE A DAY,(AT NIGHT)
     Route: 065
  3. TRAZODONE [Suspect]
     Active Substance: TRAZODONE HYDROCHLORIDE
     Indication: Illness
     Dosage: 100 MILLIGRAM, ONCE A DAY,  (AT NIGHT)
     Route: 065

REACTIONS (2)
  - Cardiovascular disorder [Unknown]
  - Product use in unapproved indication [Unknown]
